FAERS Safety Report 20849806 (Version 1)
Quarter: 2022Q2

REPORT INFORMATION
  Report Type: Other
  Country: US (occurrence: US)
  Receive Date: 20220519
  Receipt Date: 20220519
  Transmission Date: 20220721
  Serious: Yes (Other)
  Sender: FDA-Public Use
  Company Number: US-DECIPHERA PHARMACEUTICALS LLC-2022US000411

PATIENT
  Sex: Female

DRUGS (1)
  1. QINLOCK [Suspect]
     Active Substance: RIPRETINIB
     Indication: Neoplasm malignant
     Dosage: 100 MILLIGRAM, QD
     Route: 048
     Dates: start: 20210609

REACTIONS (6)
  - Anaemia [Unknown]
  - Neoplasm progression [Unknown]
  - Bone pain [Unknown]
  - Arthralgia [Unknown]
  - Myalgia [Unknown]
  - Underdose [Unknown]

NARRATIVE: CASE EVENT DATE: 20210609
